FAERS Safety Report 5690304-7 (Version None)
Quarter: 2008Q2

REPORT INFORMATION
  Report Type: 
  Country: None (occurrence: None)
  Receive Date: 20080401
  Receipt Date: 20010116
  Transmission Date: 20081010
  Serious: Yes (Death)
  Sender: FDA-Public Use
  Company Number: US-ROCHE-251893

PATIENT
  Age: 76 Year
  Sex: Female
  Weight: 50.8 kg

DRUGS (7)
  1. XELODA [Suspect]
     Indication: COLON CANCER
     Route: 048
     Dates: start: 20001219, end: 20001223
  2. XELODA [Suspect]
     Route: 048
     Dates: start: 20001227, end: 20001230
  3. ACETAMINOPHEN W/ CODEINE [Concomitant]
     Indication: PAIN
     Route: 048
     Dates: start: 20001219
  4. DURAGESIC-100 [Concomitant]
     Indication: PAIN
     Route: 062
     Dates: start: 20001219
  5. LASIX [Concomitant]
     Indication: DEHYDRATION
     Route: 048
     Dates: start: 20001219, end: 20001223
  6. K-DUR [Concomitant]
     Route: 048
     Dates: start: 20001219, end: 20001223
  7. LOMOTIL [Concomitant]
     Indication: DIARRHOEA
     Route: 048
     Dates: start: 20001219

REACTIONS (12)
  - ABDOMINAL DISTENSION [None]
  - ANOREXIA [None]
  - ASTHENIA [None]
  - CONFUSIONAL STATE [None]
  - DEATH [None]
  - DISTURBANCE IN ATTENTION [None]
  - ERYTHEMA [None]
  - FATIGUE [None]
  - HALLUCINATION [None]
  - HYPERSOMNIA [None]
  - MOUTH ULCERATION [None]
  - OEDEMA PERIPHERAL [None]
